FAERS Safety Report 10954547 (Version 3)
Quarter: 2015Q2

REPORT INFORMATION
  Report Type: Spontaneous
  Country: US (occurrence: US)
  Receive Date: 20150325
  Receipt Date: 20150507
  Transmission Date: 20150821
  Serious: No
  Sender: FDA-Public Use
  Company Number: US-GLAXOSMITHKLINE-US2015036138

PATIENT
  Sex: Male

DRUGS (3)
  1. COREG CR [Suspect]
     Active Substance: CARVEDILOL PHOSPHATE
     Indication: CARDIOMYOPATHY
     Dosage: 80 MG, 1D
     Route: 048
  2. BYETTA [Concomitant]
     Active Substance: EXENATIDE
  3. LOSARTAN [Concomitant]
     Active Substance: LOSARTAN

REACTIONS (7)
  - Heart rate abnormal [Not Recovered/Not Resolved]
  - Heart rate irregular [Unknown]
  - Drug ineffective [Not Recovered/Not Resolved]
  - Blood pressure abnormal [Not Recovered/Not Resolved]
  - Cardiac discomfort [Unknown]
  - Drug dose omission [Recovered/Resolved]
  - Product quality issue [Unknown]
